FAERS Safety Report 8262130-6 (Version None)
Quarter: 2012Q2

REPORT INFORMATION
  Report Type: 
  Country: None (occurrence: None)
  Receive Date: 20120405
  Receipt Date: 20120403
  Transmission Date: 20120825
  Serious: Yes (Other)
  Sender: FDA-Public Use
  Company Number: PHFR2011GB06034

PATIENT
  Sex: Female
  Weight: 125 kg

DRUGS (10)
  1. CITALOPRAM HYDROBROMIDE [Concomitant]
  2. TASIGNA [Suspect]
     Indication: CHRONIC MYELOID LEUKAEMIA
     Dosage: 400 MG, BID
     Dates: start: 20111011, end: 20111018
  3. GLIPIZIDE [Concomitant]
  4. ENALAPRIL [Concomitant]
  5. BENDROFLUAZIDE [Concomitant]
  6. SIMVADURA [Concomitant]
  7. PIOGLITAZONE [Concomitant]
  8. ASPIRIN [Concomitant]
     Dosage: 75 MG, DAILY
  9. ATENOLOL [Concomitant]
  10. METFORMIN HCL [Concomitant]

REACTIONS (2)
  - CHEST PAIN [None]
  - ELECTROCARDIOGRAM QT PROLONGED [None]
